FAERS Safety Report 20867877 (Version 1)
Quarter: 2022Q2

REPORT INFORMATION
  Report Type: Spontaneous
  Country: MX (occurrence: None)
  Receive Date: 20220523
  Receipt Date: 20220523
  Transmission Date: 20220721
  Serious: No
  Sender: FDA-Public Use
  Company Number: None

PATIENT
  Age: 54 Year
  Sex: Male
  Weight: 78 kg

DRUGS (6)
  1. CABOZANTINIB [Suspect]
     Active Substance: CABOZANTINIB
     Indication: Renal cancer
     Dosage: OTHER QUANTITY : 30 CAPSULE(S);?FREQUENCY : DAILY;?
     Route: 048
  2. CABOZANTINIB [Suspect]
     Active Substance: CABOZANTINIB
     Indication: Metastasis
  3. SENNOSIDES A-B [Concomitant]
  4. BUPRENORPHNE [Concomitant]
  5. VENGESIC [Concomitant]
  6. OMEPAZOL [Concomitant]

REACTIONS (7)
  - Oral mucosal blistering [None]
  - Arthralgia [None]
  - Fatigue [None]
  - Nausea [None]
  - Ageusia [None]
  - Dysphonia [None]
  - Blister [None]
